FAERS Safety Report 8235943-4 (Version None)
Quarter: 2012Q1

REPORT INFORMATION
  Report Type: 
  Country: None (occurrence: None)
  Receive Date: 20120326
  Receipt Date: 20120323
  Transmission Date: 20120608
  Serious: Yes (Other)
  Sender: FDA-Public Use
  Company Number: SG-MERCK-1203USA02857

PATIENT
  Age: 72 Year
  Sex: Female

DRUGS (2)
  1. FOSAMAX [Suspect]
     Route: 065
  2. INDIGO [Concomitant]
     Route: 065

REACTIONS (1)
  - SOMNOLENCE [None]
